FAERS Safety Report 11170885 (Version 1)
Quarter: 2015Q2

REPORT INFORMATION
  Report Type: Spontaneous
  Country: US (occurrence: US)
  Receive Date: 20150608
  Receipt Date: 20150608
  Transmission Date: 20150821
  Serious: No
  Sender: FDA-Public Use
  Company Number: US-BIOGENIDEC-2015BI075838

PATIENT
  Sex: Female

DRUGS (1)
  1. TYSABRI [Suspect]
     Active Substance: NATALIZUMAB
     Indication: MULTIPLE SCLEROSIS
     Route: 042
     Dates: start: 20130111

REACTIONS (10)
  - Asthenia [Recovered/Resolved]
  - Memory impairment [Recovered/Resolved]
  - Acne [Recovered/Resolved]
  - Feeling abnormal [Recovered/Resolved]
  - Abulia [Unknown]
  - Musculoskeletal disorder [Unknown]
  - Anxiety [Recovered/Resolved]
  - Malaise [Recovered/Resolved]
  - Nasopharyngitis [Recovered/Resolved]
  - Pyrexia [Recovered/Resolved]

NARRATIVE: CASE EVENT DATE: 2014
